FAERS Safety Report 7253533-7 (Version None)
Quarter: 2011Q1

REPORT INFORMATION
  Report Type: 
  Country: None (occurrence: None)
  Receive Date: 20110129
  Receipt Date: 20100401
  Transmission Date: 20110831
  Serious: No
  Sender: FDA-Public Use
  Company Number: US-ABBOTT-10P-163-0626447-00

PATIENT
  Sex: Male
  Weight: 73.548 kg

DRUGS (6)
  1. METHOTREXATE [Concomitant]
  2. HUMIRA [Suspect]
     Indication: PSORIATIC ARTHROPATHY
  3. HUMIRA [Suspect]
     Indication: RHEUMATOID ARTHRITIS
     Dates: start: 20070216
  4. METHOTREXATE [Concomitant]
     Indication: PRODUCT USED FOR UNKNOWN INDICATION
  5. METHOTREXATE [Concomitant]
  6. HUMIRA [Suspect]

REACTIONS (8)
  - DRUG INEFFECTIVE [None]
  - RHEUMATOID ARTHRITIS [None]
  - WEIGHT DECREASED [None]
  - NODULE [None]
  - PAIN [None]
  - GENERALISED OEDEMA [None]
  - ARTHRALGIA [None]
  - PSORIASIS [None]
